FAERS Safety Report 21055688 (Version 7)
Quarter: 2022Q4

REPORT INFORMATION
  Report Type: Report from Study
  Country: US (occurrence: US)
  Receive Date: 20220708
  Receipt Date: 20221116
  Transmission Date: 20230112
  Serious: No
  Sender: FDA-Public Use
  Company Number: US-NOVARTISTESTPH-NVSC2022US154870

PATIENT
  Sex: Male

DRUGS (2)
  1. ENTRESTO [Suspect]
     Active Substance: SACUBITRIL\VALSARTAN
     Indication: Product used for unknown indication
     Dosage: 1 DOSAGE FORM, BID (24/26 MG)
     Route: 048
     Dates: start: 202111
  2. ENTRESTO [Suspect]
     Active Substance: SACUBITRIL\VALSARTAN
     Dosage: 0.5 DOSAGE FORM, BID (24/26 MG)
     Route: 048

REACTIONS (9)
  - Hypotension [Unknown]
  - Dizziness [Recovered/Resolved]
  - Rhinorrhoea [Unknown]
  - Sinus congestion [Unknown]
  - Weight increased [Unknown]
  - Prescribed underdose [Unknown]
  - Product use issue [Unknown]
  - Wrong technique in product usage process [Not Recovered/Not Resolved]
  - Product dose omission in error [Unknown]
